FAERS Safety Report 21556167 (Version 1)
Quarter: 2022Q4

REPORT INFORMATION
  Report Type: Spontaneous
  Country: BE (occurrence: BE)
  Receive Date: 20221104
  Receipt Date: 20221104
  Transmission Date: 20230112
  Serious: Yes (Other)
  Sender: FDA-Public Use
  Company Number: BE-009507513-2210BEL007114

PATIENT
  Sex: Male

DRUGS (4)
  1. MEDROL [Suspect]
     Active Substance: METHYLPREDNISOLONE
     Dosage: 48 MG
     Dates: start: 2022
  2. TEMODAL [Suspect]
     Active Substance: TEMOZOLOMIDE
     Indication: Glioblastoma
     Dosage: UNKNOWN
     Route: 048
     Dates: start: 202207
  3. TEMODAL [Suspect]
     Active Substance: TEMOZOLOMIDE
     Dosage: 16 MG
     Route: 048
     Dates: start: 2022
  4. TEMODAL [Suspect]
     Active Substance: TEMOZOLOMIDE
     Dosage: UNKNOWN
     Route: 048
     Dates: start: 2022

REACTIONS (3)
  - Neoplasm progression [Unknown]
  - Hemiparesis [Unknown]
  - Tumour necrosis [Unknown]

NARRATIVE: CASE EVENT DATE: 20220701
